FAERS Safety Report 7793125-4 (Version None)
Quarter: 2011Q4

REPORT INFORMATION
  Report Type: 
  Country: None (occurrence: None)
  Receive Date: 20111003
  Receipt Date: 20110920
  Transmission Date: 20120403
  Serious: Yes (Hospitalization, Other)
  Sender: FDA-Public Use
  Company Number: US-JNJFOC-20100302414

PATIENT
  Sex: Male
  Weight: 60.7 kg

DRUGS (13)
  1. PREDNISONE [Suspect]
     Indication: SINUSITIS
     Route: 048
  2. PREDNISONE [Suspect]
     Route: 048
     Dates: start: 20100223
  3. REMICADE [Suspect]
     Indication: INFLAMMATORY BOWEL DISEASE
     Route: 042
     Dates: start: 20090811
  4. MULTI-VITAMINS [Concomitant]
  5. MESALAMINE [Concomitant]
     Route: 048
  6. IRON [Concomitant]
  7. PREDNISONE [Suspect]
     Route: 048
     Dates: start: 20100223
  8. RETIN-A [Concomitant]
     Route: 061
  9. ALBUTEROL [Concomitant]
  10. PREDNISONE [Suspect]
     Indication: ASTHMA
     Route: 048
  11. CLARITHROMYCIN [Concomitant]
     Indication: SINUSITIS
  12. REMICADE [Suspect]
     Route: 042
     Dates: start: 20100222, end: 20100222
  13. TOPAMAX [Concomitant]

REACTIONS (1)
  - JUVENILE MYOCLONIC EPILEPSY [None]
